FAERS Safety Report 5573437-5 (Version None)
Quarter: 2007Q4

REPORT INFORMATION
  Report Type: 
  Country: None (occurrence: None)
  Receive Date: 20071226
  Receipt Date: 20071219
  Transmission Date: 20080405
  Serious: Yes (Hospitalization, Other)
  Sender: FDA-Public Use
  Company Number: GB-BRISTOL-MYERS SQUIBB COMPANY-14019327

PATIENT
  Age: 50 Year
  Sex: Male
  Weight: 81 kg

DRUGS (2)
  1. ARIPIPRAZOLE [Suspect]
     Indication: SCHIZOPHRENIA
     Route: 048
     Dates: start: 20061103, end: 20070118
  2. FLUPHENAZINE DECANOATE [Concomitant]
     Route: 030
     Dates: end: 20071005

REACTIONS (1)
  - PERICARDITIS CONSTRICTIVE [None]
